FAERS Safety Report 8598366-4 (Version None)
Quarter: 2012Q3

REPORT INFORMATION
  Report Type: 
  Country: None (occurrence: None)
  Receive Date: 20120816
  Receipt Date: 20120807
  Transmission Date: 20120928
  Serious: Yes (Hospitalization)
  Sender: FDA-Public Use
  Company Number: CA-JNJFOC-20120804483

PATIENT
  Age: 4 Decade
  Sex: Male

DRUGS (3)
  1. ADVIL COLD AND SINUS [Suspect]
     Indication: PAIN
     Route: 065
  2. TYLENOL [Suspect]
     Route: 048
  3. TYLENOL [Suspect]
     Indication: PAIN
     Route: 048

REACTIONS (4)
  - URTICARIA [None]
  - LOCAL SWELLING [None]
  - EYE SWELLING [None]
  - HYPERSENSITIVITY [None]
